FAERS Safety Report 13023267 (Version 1)
Quarter: 2016Q4

REPORT INFORMATION
  Report Type: Spontaneous
  Country: GB (occurrence: GB)
  Receive Date: 20161213
  Receipt Date: 20161213
  Transmission Date: 20170207
  Serious: Yes (Other)
  Sender: FDA-Public Use
  Company Number: GB-PFIZER INC-2016573991

PATIENT
  Age: 75 Year
  Sex: Female
  Weight: 58 kg

DRUGS (10)
  1. FENTANYL. [Concomitant]
     Active Substance: FENTANYL
     Indication: PAIN
     Dosage: 1 UNK, 3X/DAY
     Route: 062
     Dates: start: 201610
  2. CARBOPLATIN. [Suspect]
     Active Substance: CARBOPLATIN
     Dosage: UNK
     Route: 042
  3. DIHYDROCODEINE [Suspect]
     Active Substance: DIHYDROCODEINE
     Dosage: UNK
     Route: 065
  4. ALENDRONIC ACID [Concomitant]
     Active Substance: ALENDRONIC ACID
     Indication: BONE DISORDER
     Dosage: 1 UNK, WEEKLY
     Route: 065
     Dates: start: 201602
  5. SALBUTAMOL [Concomitant]
     Active Substance: ALBUTEROL
     Indication: CHRONIC OBSTRUCTIVE PULMONARY DISEASE
     Dosage: DOSAGE FORM: UNSPECIFIED, 1 TO 2 PUFFS
     Route: 065
  6. PARACETAMOL [Suspect]
     Active Substance: ACETAMINOPHEN
     Dosage: UNK
     Route: 065
  7. CAELYX [Suspect]
     Active Substance: DOXORUBICIN HYDROCHLORIDE
     Indication: OVARIAN CANCER
     Dosage: 49 MG IN 250 ML GLUCOSE 5 %
     Route: 042
     Dates: start: 20161107, end: 20161107
  8. IPRATROPIUM /00391402/ [Concomitant]
     Indication: CHRONIC OBSTRUCTIVE PULMONARY DISEASE
     Dosage: 1 PUFFS THREE TIMES
     Route: 065
  9. SERETIDE [Concomitant]
     Active Substance: FLUTICASONE PROPIONATE\SALMETEROL XINAFOATE
     Dosage: 1 DF, 2X/DAY (DOSAGE FORM: UNSPECIFIED)
     Route: 058
  10. LEVOTHYROXINE /00068002/ [Concomitant]
     Active Substance: LEVOTHYROXINE
     Indication: HYPERTHYROIDISM
     Dosage: 75 UG, 1X/DAY (DOSAGE FORM: UNSPECIFIED)
     Route: 065

REACTIONS (1)
  - Dysaesthesia [Recovered/Resolved]

NARRATIVE: CASE EVENT DATE: 20161107
